FAERS Safety Report 10382482 (Version 4)
Quarter: 2014Q4

REPORT INFORMATION
  Report Type: Report from Study
  Country: US (occurrence: US)
  Receive Date: 20140813
  Receipt Date: 20141117
  Transmission Date: 20150528
  Serious: Yes (Hospitalization, Other)
  Sender: FDA-Public Use
  Company Number: US-SA-2014SA058070

PATIENT
  Age: 70 Year
  Sex: Female

DRUGS (15)
  1. ANTIBIOTICS [Concomitant]
     Active Substance: UNSPECIFIED INGREDIENT
  2. HYDROCHLOROTHIAZIDE/VALSARTAN [Concomitant]
     Active Substance: HYDROCHLOROTHIAZIDE\VALSARTAN
  3. NORVASC [Concomitant]
     Active Substance: AMLODIPINE BESYLATE
  4. MACROBID [Concomitant]
     Active Substance: NITROFURANTOIN\NITROFURANTOIN MONOHYDRATE
  5. OMEGA 3 [Concomitant]
     Active Substance: OMEGA-3 FATTY ACIDS
  6. AUBAGIO [Suspect]
     Active Substance: TERIFLUNOMIDE
     Indication: MULTIPLE SCLEROSIS
     Route: 048
     Dates: start: 20140422
  7. OMEPRAZOLE. [Concomitant]
     Active Substance: OMEPRAZOLE
  8. OXYGEN. [Concomitant]
     Active Substance: OXYGEN
  9. MULTIVITAMINS [Concomitant]
     Active Substance: VITAMINS
  10. OXYBUTYNIN [Concomitant]
     Active Substance: OXYBUTYNIN
  11. CYMBALTA [Concomitant]
     Active Substance: DULOXETINE HYDROCHLORIDE
  12. ZETIA [Concomitant]
     Active Substance: EZETIMIBE
  13. PRAVASTATIN [Concomitant]
     Active Substance: PRAVASTATIN\PRAVASTATIN SODIUM
  14. VITAMIN D3 [Concomitant]
     Active Substance: CHOLECALCIFEROL
  15. CLARITIN [Concomitant]
     Active Substance: LORATADINE

REACTIONS (20)
  - Paraesthesia [Unknown]
  - Abdominal pain [Unknown]
  - Drug ineffective [Unknown]
  - Sepsis [Unknown]
  - Renal pain [Unknown]
  - Decreased interest [Not Recovered/Not Resolved]
  - Nausea [Unknown]
  - Urinary tract infection [Unknown]
  - Back pain [Not Recovered/Not Resolved]
  - Asthenia [Not Recovered/Not Resolved]
  - Headache [Unknown]
  - Liver function test abnormal [Not Recovered/Not Resolved]
  - Sluggishness [Unknown]
  - Fatigue [Unknown]
  - Diarrhoea [Unknown]
  - Renal cyst [Unknown]
  - Thyroid cyst [Not Recovered/Not Resolved]
  - Fatigue [Not Recovered/Not Resolved]
  - Depressed mood [Not Recovered/Not Resolved]
  - Cystitis [Unknown]

NARRATIVE: CASE EVENT DATE: 201404
